FAERS Safety Report 19873208 (Version 1)
Quarter: 2021Q3

REPORT INFORMATION
  Report Type: Spontaneous
  Country: NO (occurrence: NO)
  Receive Date: 20210922
  Receipt Date: 20210922
  Transmission Date: 20211014
  Serious: Yes (Hospitalization)
  Sender: FDA-Public Use
  Company Number: NO-SAMSUNG BIOEPIS-SB-2021-22093

PATIENT
  Age: 34 Year
  Sex: Female

DRUGS (5)
  1. INFLIXIMAB [Suspect]
     Active Substance: INFLIXIMAB
     Indication: CROHN^S DISEASE
     Dosage: UNKNOWN
     Route: 065
     Dates: start: 20210804
  2. NYCOPLUS VITAMIN D3 [Concomitant]
     Indication: VITAMIN SUPPLEMENTATION
     Dosage: 2 CAPSULES EVERY MORNING.
     Route: 048
  3. QUESTRAN [Concomitant]
     Active Substance: CHOLESTYRAMINE
     Indication: DIARRHOEA
     Dosage: 4 GRAMS 1 TO 4 TIMES A DAY
     Route: 048
  4. VITAMIN B12 [Concomitant]
     Active Substance: CYANOCOBALAMIN
     Indication: VITAMIN B12 DEFICIENCY
     Dosage: 1 ML EVERY OTHER DAY FOR A TOTAL OF 5 TIMES, THEN 1 ML EVERY 3 MONTHS.
     Route: 030
  5. PARACET [Concomitant]
     Indication: ANALGESIC THERAPY
     Dosage: UNKNOWN, 1 TABLET UP TO 3 TIMES A DAY. THE PATIENT SHOULD USE AS LITTLE AS POSSIBLE DUE TO INCREASED
     Route: 048

REACTIONS (4)
  - Pain in extremity [Recovering/Resolving]
  - Pyrexia [Recovering/Resolving]
  - Serum sickness [Recovering/Resolving]
  - Joint stiffness [Recovering/Resolving]

NARRATIVE: CASE EVENT DATE: 20210815
